FAERS Safety Report 11392662 (Version 1)
Quarter: 2015Q3

REPORT INFORMATION
  Report Type: Spontaneous
  Country: DK (occurrence: DK)
  Receive Date: 20150818
  Receipt Date: 20150818
  Transmission Date: 20151125
  Serious: Yes (Hospitalization, Other)
  Sender: FDA-Public Use
  Company Number: DK-TEVA-585642ISR

PATIENT
  Age: 43 Year
  Sex: Female

DRUGS (4)
  1. OXYCONTIN [Suspect]
     Active Substance: OXYCODONE HYDROCHLORIDE
     Indication: PAIN
  2. SAROTEN [Suspect]
     Active Substance: AMITRIPTYLINE
     Indication: PAIN
  3. KETOGAN [Concomitant]
     Active Substance: KETOBEMIDONE HYDROCHLORIDE
     Indication: PAIN
  4. GABAPENTIN. [Suspect]
     Active Substance: GABAPENTIN
     Indication: PAIN

REACTIONS (10)
  - Cognitive disorder [Unknown]
  - Loss of consciousness [Unknown]
  - Dysphemia [Unknown]
  - Tremor [Unknown]
  - Memory impairment [Unknown]
  - Overdose [Unknown]
  - Fall [Unknown]
  - Anxiety [Unknown]
  - Dependence [Unknown]
  - Tooth disorder [Unknown]

NARRATIVE: CASE EVENT DATE: 201107
